FAERS Safety Report 6535358-0 (Version None)
Quarter: 2010Q1

REPORT INFORMATION
  Report Type: 
  Country: None (occurrence: None)
  Receive Date: 20100113
  Receipt Date: 20100113
  Transmission Date: 20100710
  Serious: Yes (Other)
  Sender: FDA-Public Use
  Company Number: US-RB-016588-09

PATIENT
  Age: 74 Year
  Sex: Male

DRUGS (1)
  1. MUCINEX [Suspect]
     Route: 048
     Dates: start: 20090401

REACTIONS (1)
  - HAEMOPTYSIS [None]
